FAERS Safety Report 17913919 (Version 1)
Quarter: 2020Q2

REPORT INFORMATION
  Report Type: Other
  Country: NL (occurrence: NL)
  Receive Date: 20200619
  Receipt Date: 20200619
  Transmission Date: 20200714
  Serious: Yes (Hospitalization)
  Sender: FDA-Public Use
  Company Number: NL-CELLTRION INC.-2020NL023359

PATIENT

DRUGS (13)
  1. RABEPRAZOL [Concomitant]
     Active Substance: RABEPRAZOLE
     Dosage: TABLET, 10 MG (MILLIGRAM)
  2. OXYCODON [Concomitant]
     Active Substance: OXYCODONE
     Dosage: TABLET, 10 MG (MILLIGRAM)
  3. LOPERAMIDE [Concomitant]
     Active Substance: LOPERAMIDE
     Dosage: CAPSULE, 2 MG (MILLIGRAM)
  4. HYDROCHLOORTHIAZIDE [Concomitant]
     Active Substance: HYDROCHLOROTHIAZIDE
     Dosage: TABLET, 12,5 MG (MILLIGRAM)
  5. SCOPOLAMINEBUTYL [Concomitant]
     Dosage: 10 MG (MILLIGRAM)
  6. METFORMINE [Concomitant]
     Active Substance: METFORMIN HYDROCHLORIDE
     Dosage: TABLET, 500 MG (MILLIGRAM)
  7. METOPROLOL. [Concomitant]
     Active Substance: METOPROLOL
     Dosage: TABLET, 100 MG (MILLIGRAM)
  8. PERINDOPRIL [Concomitant]
     Active Substance: PERINDOPRIL
     Dosage: TABLET, 4 MG (MILLIGRAM)
  9. INFLIXIMAB (UNKNOWN) [Suspect]
     Active Substance: INFLIXIMAB
     Indication: CROHN^S DISEASE
     Dosage: 1X 400 MG
     Dates: start: 20200528
  10. CLONIDINE. [Concomitant]
     Active Substance: CLONIDINE
     Dosage: TABLET, 0,025 MG (MILLIGRAM)
  11. KALIUMCITRAT [Concomitant]
     Active Substance: POTASSIUM CITRATE
     Dosage: CAPSULE, 500 MG (MILLIGRAM)
  12. ACETYLSALICYLZUUR [Concomitant]
     Active Substance: ASPIRIN
     Dosage: TABLET, 80 MG (MILLIGRAM)
  13. EUTHYROX [Concomitant]
     Active Substance: LEVOTHYROXINE SODIUM
     Dosage: TABLET, 75 UG (MICROGRAM)

REACTIONS (1)
  - Polyarthritis [Unknown]
